FAERS Safety Report 13061876 (Version 1)
Quarter: 2016Q4

REPORT INFORMATION
  Report Type: Spontaneous
  Country: US (occurrence: US)
  Receive Date: 20161226
  Receipt Date: 20161226
  Transmission Date: 20170207
  Serious: Yes (Other)
  Sender: FDA-Public Use
  Company Number: US-TESARO INC.-TS50-00267-2016USA

PATIENT
  Sex: Male

DRUGS (2)
  1. VARUBI [Suspect]
     Active Substance: ROLAPITANT
     Indication: NAUSEA
     Route: 048
     Dates: start: 20161027
  2. VARUBI [Suspect]
     Active Substance: ROLAPITANT
     Indication: VOMITING

REACTIONS (9)
  - Breath sounds abnormal [Unknown]
  - Constipation [Unknown]
  - Micturition urgency [Unknown]
  - Neutrophil count decreased [Unknown]
  - Hydronephrosis [Unknown]
  - Platelet count decreased [Unknown]
  - Oedema peripheral [Unknown]
  - Muscle spasms [Recovering/Resolving]
  - Urine flow decreased [Unknown]
